FAERS Safety Report 18087211 (Version 11)
Quarter: 2021Q1

REPORT INFORMATION
  Report Type: Spontaneous
  Country: CA (occurrence: CA)
  Receive Date: 20200729
  Receipt Date: 20210224
  Transmission Date: 20210419
  Serious: Yes (Death, Other)
  Sender: FDA-Public Use
  Company Number: CA-PFIZER INC-2020184626

PATIENT
  Age: 61 Year
  Sex: Male
  Weight: 102 kg

DRUGS (30)
  1. ZIRABEV [Suspect]
     Active Substance: BEVACIZUMAB-BVZR
     Dosage: 1500 MG, EVERY 3 WEEKS
     Route: 042
     Dates: start: 20200923
  2. DEXAMETHASONE 21 [Concomitant]
     Active Substance: DEXAMETHASONE SODIUM PHOSPHATE
     Dosage: 4 MG, DAILY (INJECTION) (5MG/ML)
  3. JANUMET [Concomitant]
     Active Substance: METFORMIN HYDROCHLORIDE\SITAGLIPTIN PHOSPHATE
     Indication: DIABETES MELLITUS
     Dosage: UNK
  4. ZIRABEV [Suspect]
     Active Substance: BEVACIZUMAB-BVZR
     Dosage: 1500 MG, EVERY 3 WEEKS
     Route: 042
     Dates: start: 20200626
  5. ZIRABEV [Suspect]
     Active Substance: BEVACIZUMAB-BVZR
     Dosage: 1500 MG, EVERY 3 WEEKS
     Route: 042
     Dates: start: 20201014
  6. ZIRABEV [Suspect]
     Active Substance: BEVACIZUMAB-BVZR
     Dosage: 1500 MG, EVERY 3 WEEKS
     Route: 042
     Dates: start: 20201104
  7. JARDIANCE [Concomitant]
     Active Substance: EMPAGLIFLOZIN
     Indication: DIABETES MELLITUS
     Dosage: UNK
  8. OMEPRAZOLE. [Concomitant]
     Active Substance: OMEPRAZOLE
     Dosage: UNK
  9. AMLODIPINE [Concomitant]
     Active Substance: AMLODIPINE BESYLATE
     Dosage: UNK
  10. ZIRABEV [Suspect]
     Active Substance: BEVACIZUMAB-BVZR
     Dosage: 1500 MG, EVERY 3 WEEKS
     Route: 042
     Dates: start: 20200604
  11. ZIRABEV [Suspect]
     Active Substance: BEVACIZUMAB-BVZR
     Dosage: 1500 MG, EVERY 3 WEEKS
     Route: 042
     Dates: start: 20200626
  12. ZIRABEV [Suspect]
     Active Substance: BEVACIZUMAB-BVZR
     Dosage: 1500 MG, EVERY 3 WEEKS
     Route: 042
     Dates: start: 20200721
  13. ZIRABEV [Suspect]
     Active Substance: BEVACIZUMAB-BVZR
     Dosage: 1500 MG, EVERY 3 WEEKS
     Route: 042
     Dates: start: 20200812
  14. ZIRABEV [Suspect]
     Active Substance: BEVACIZUMAB-BVZR
     Dosage: 1500 MG, EVERY 3 WEEKS
     Route: 042
     Dates: start: 20200902
  15. ZIRABEV [Suspect]
     Active Substance: BEVACIZUMAB-BVZR
     Dosage: 1500 MG, EVERY 3 WEEKS
     Route: 042
     Dates: start: 20201014
  16. ROSUVASTATIN. [Concomitant]
     Active Substance: ROSUVASTATIN
     Dosage: UNK
  17. LEVETIRACETAM. [Concomitant]
     Active Substance: LEVETIRACETAM
     Indication: SEIZURE
     Dosage: 1250 MG, 2X/DAY
  18. ZIRABEV [Suspect]
     Active Substance: BEVACIZUMAB-BVZR
     Dosage: 1500 MG, EVERY 3 WEEKS
     Route: 042
     Dates: start: 20200721
  19. ZIRABEV [Suspect]
     Active Substance: BEVACIZUMAB-BVZR
     Dosage: 1500 MG, EVERY 3 WEEKS
     Route: 042
     Dates: start: 20200812
  20. BISOPROLOL [Concomitant]
     Active Substance: BISOPROLOL
     Dosage: UNK
  21. DEXAMETHASONE. [Concomitant]
     Active Substance: DEXAMETHASONE
     Dosage: 4 MG, 2X/DAY
  22. VITAMIN D3 [Concomitant]
     Active Substance: CHOLECALCIFEROL
     Dosage: UNK
  23. ZIRABEV [Suspect]
     Active Substance: BEVACIZUMAB-BVZR
     Dosage: 1500 MG, EVERY 3 WEEKS
     Route: 042
     Dates: start: 20200923
  24. ZIRABEV [Suspect]
     Active Substance: BEVACIZUMAB-BVZR
     Dosage: 1500 MG, EVERY 3 WEEKS
     Route: 042
     Dates: start: 20201104
  25. ZIRABEV [Suspect]
     Active Substance: BEVACIZUMAB-BVZR
     Dosage: 1500 MG, EVERY 3 WEEKS
     Route: 042
     Dates: start: 20210106, end: 20210106
  26. ZIRABEV [Suspect]
     Active Substance: BEVACIZUMAB-BVZR
     Dosage: 1500 MG, EVERY 3 WEEKS
     Route: 042
     Dates: start: 20210106, end: 20210106
  27. FLUCONAZOLE. [Concomitant]
     Active Substance: FLUCONAZOLE
     Indication: ORAL CANDIDIASIS
     Dosage: UNK
  28. ZIRABEV [Suspect]
     Active Substance: BEVACIZUMAB-BVZR
     Indication: LUNG SQUAMOUS CELL CARCINOMA STAGE IV
     Dosage: 780 MG, EVERY 3 WEEKS
     Route: 042
     Dates: start: 20200514, end: 202006
  29. ZIRABEV [Suspect]
     Active Substance: BEVACIZUMAB-BVZR
     Dosage: 1500 MG, EVERY 3 WEEKS
     Route: 042
     Dates: start: 20200902
  30. PERINDOPRIL [Concomitant]
     Active Substance: PERINDOPRIL
     Dosage: UNK

REACTIONS (24)
  - Urine ketone body present [Not Recovered/Not Resolved]
  - Petechiae [Unknown]
  - Vomiting [Unknown]
  - Fatigue [Unknown]
  - Hemiparesis [Not Recovered/Not Resolved]
  - Tooth infection [Unknown]
  - Red blood cell morphology abnormal [Unknown]
  - Haemoglobin decreased [Unknown]
  - Mobility decreased [Unknown]
  - Off label use [Unknown]
  - Platelet morphology abnormal [Unknown]
  - Glucose urine present [Not Recovered/Not Resolved]
  - Chills [Unknown]
  - Nausea [Unknown]
  - Red cell distribution width increased [Not Recovered/Not Resolved]
  - Death [Fatal]
  - Haematocrit decreased [Unknown]
  - Platelet count decreased [Not Recovered/Not Resolved]
  - Red blood cell count decreased [Unknown]
  - Neoplasm progression [Unknown]
  - Blood pressure increased [Recovered/Resolved]
  - Hypoglycaemia [Unknown]
  - Blood glucose decreased [Unknown]
  - Inappropriate schedule of product administration [Unknown]

NARRATIVE: CASE EVENT DATE: 2020
